FAERS Safety Report 5245232-8 (Version None)
Quarter: 2007Q1

REPORT INFORMATION
  Report Type: 
  Country: None (occurrence: None)
  Receive Date: 20070223
  Receipt Date: 20070215
  Transmission Date: 20070707
  Serious: Yes (Other)
  Sender: FDA-Public Use
  Company Number: BR-ROCHE-483058

PATIENT
  Age: 55 Year
  Sex: Female
  Weight: 43 kg

DRUGS (2)
  1. RIVOTRIL [Suspect]
     Indication: LABYRINTHITIS
     Route: 048
     Dates: start: 20030615
  2. PURAN T4 [Concomitant]
     Indication: THYROID DISORDER
     Route: 048

REACTIONS (2)
  - BLOOD BILIRUBIN INCREASED [None]
  - GALLBLADDER DISORDER [None]
